FAERS Safety Report 17536534 (Version 1)
Quarter: 2020Q1

REPORT INFORMATION
  Report Type: Spontaneous
  Country: US (occurrence: US)
  Receive Date: 20200313
  Receipt Date: 20200313
  Transmission Date: 20200409
  Serious: Yes (Other)
  Sender: FDA-Public Use
  Company Number: US-EMCURE PHARMACEUTICALS LTD-2020-EPL-000256

PATIENT
  Age: 82 Year
  Sex: Male

DRUGS (3)
  1. GEMCITABINE HYDROCHLORIDE. [Suspect]
     Active Substance: GEMCITABINE HYDROCHLORIDE
     Dosage: 500 MILLIGRAM/SQ. METER, EVERY OTHER WEEK
  2. PEGFILGRASTIM [Concomitant]
     Active Substance: PEGFILGRASTIM
     Dosage: UNK
  3. GEMCITABINE HYDROCHLORIDE. [Suspect]
     Active Substance: GEMCITABINE HYDROCHLORIDE
     Indication: CHOLANGIOCARCINOMA
     Dosage: 1000 MILLIGRAM/SQ. METER, CYCLIC ON DAYS ONE AND EIGHT EVERY THREE WEEKS

REACTIONS (4)
  - Pulmonary hypertension [Unknown]
  - Off label use [Unknown]
  - Rash maculo-papular [Recovered/Resolved]
  - Fatigue [Recovering/Resolving]
